FAERS Safety Report 13636775 (Version 1)
Quarter: 2017Q2

REPORT INFORMATION
  Report Type: Spontaneous
  Country: US (occurrence: US)
  Receive Date: 20170531
  Receipt Date: 20170531
  Transmission Date: 20170830
  Serious: No
  Sender: FDA-Public Use
  Company Number: US-ASTELLAS-1849947

PATIENT
  Sex: Male

DRUGS (2)
  1. TARCEVA [Suspect]
     Active Substance: ERLOTINIB HYDROCHLORIDE
     Indication: LUNG NEOPLASM MALIGNANT
     Dosage: 1 HR BEFORE OR 2 HRS AFTER A MEAL
     Route: 048
     Dates: start: 20161024
  2. GABAPENTIN. [Concomitant]
     Active Substance: GABAPENTIN

REACTIONS (2)
  - Dry skin [Not Recovered/Not Resolved]
  - Diarrhoea [Not Recovered/Not Resolved]
